FAERS Safety Report 16982069 (Version 1)
Quarter: 2019Q4

REPORT INFORMATION
  Report Type: Spontaneous
  Country: US (occurrence: US)
  Receive Date: 20191101
  Receipt Date: 20191101
  Transmission Date: 20200122
  Serious: Yes (Other)
  Sender: FDA-Public Use
  Company Number: US-ROCHE-2458529

PATIENT
  Age: 63 Year
  Sex: Male

DRUGS (2)
  1. ACTILYSE [Suspect]
     Active Substance: ALTEPLASE
     Indication: PULMONARY EMBOLISM
     Route: 065
  2. HEPARIN [Concomitant]
     Active Substance: HEPARIN SODIUM

REACTIONS (7)
  - Pelvic haematoma [Unknown]
  - Haematoma muscle [Unknown]
  - Bronchial haemorrhage [Unknown]
  - Atrial septal defect [Unknown]
  - Cerebral infarction [Unknown]
  - Epistaxis [Unknown]
  - Haematoma [Unknown]
